FAERS Safety Report 25615884 (Version 2)
Quarter: 2025Q3

REPORT INFORMATION
  Report Type: Report from Study
  Country: CA (occurrence: CA)
  Receive Date: 20250729
  Receipt Date: 20250801
  Transmission Date: 20251021
  Serious: Yes (Other)
  Sender: LEO PHARM
  Company Number: CA-LEO Pharma-381600

PATIENT
  Age: 56 Year
  Sex: Male

DRUGS (1)
  1. ADBRY [Suspect]
     Active Substance: TRALOKINUMAB-LDRM
     Indication: Dermatitis atopic
     Dosage: 300 MG EVERY 2 WEEKS
     Route: 058
     Dates: start: 20240603

REACTIONS (1)
  - Pneumonia [Not Recovered/Not Resolved]
